FAERS Safety Report 23868987 (Version 4)
Quarter: 2025Q2

REPORT INFORMATION
  Report Type: Report from Study
  Country: PE (occurrence: PE)
  Receive Date: 20240517
  Receipt Date: 20250403
  Transmission Date: 20250717
  Serious: Yes (Hospitalization)
  Sender: JOHNSON AND JOHNSON
  Company Number: PE-JNJFOC-20240523405

PATIENT
  Age: 43 Year
  Sex: Male

DRUGS (4)
  1. TREMFYA [Suspect]
     Active Substance: GUSELKUMAB
     Indication: Psoriatic arthropathy
     Dates: start: 20220901, end: 20241119
  2. TREMFYA [Suspect]
     Active Substance: GUSELKUMAB
     Dates: start: 20220901, end: 20240312
  3. METHOTREXATE [Suspect]
     Active Substance: METHOTREXATE
     Indication: Product used for unknown indication
  4. KETOCONAZOLE [Interacting]
     Active Substance: KETOCONAZOLE
     Indication: Skin lesion

REACTIONS (5)
  - Hepatic failure [Recovering/Resolving]
  - Fungal skin infection [Not Recovered/Not Resolved]
  - Aphasia [Unknown]
  - Somnolence [Unknown]
  - Drug interaction [Unknown]

NARRATIVE: CASE EVENT DATE: 20240401
